FAERS Safety Report 16259406 (Version 1)
Quarter: 2019Q2

REPORT INFORMATION
  Report Type: Spontaneous
  Country: US (occurrence: US)
  Receive Date: 20190326
  Receipt Date: 20190326
  Transmission Date: 20190711
  Serious: Yes (Hospitalization)
  Sender: FDA-Public Use
  Company Number: None

PATIENT
  Age: 85 Year
  Sex: Male

DRUGS (2)
  1. APIXABAN [Suspect]
     Active Substance: APIXABAN
     Indication: ATRIAL FIBRILLATION
     Dosage: ?          OTHER DOSE:2.5 MG;?
     Route: 048
  2. APIXABAN [Suspect]
     Active Substance: APIXABAN
     Indication: CEREBROVASCULAR ACCIDENT
     Dosage: ?          OTHER DOSE:2.5 MG;?
     Route: 048

REACTIONS (10)
  - Duodenitis [None]
  - Gastrointestinal haemorrhage [None]
  - Haemoglobin decreased [None]
  - Carcinoid tumour of the gastrointestinal tract [None]
  - Fatigue [None]
  - Gastric haemorrhage [None]
  - Gastritis [None]
  - Occult blood [None]
  - Anaemia [None]
  - Lymphangiectasia [None]

NARRATIVE: CASE EVENT DATE: 20190207
